FAERS Safety Report 16334124 (Version 1)
Quarter: 2019Q2

REPORT INFORMATION
  Report Type: Spontaneous
  Country: FR (occurrence: FR)
  Receive Date: 20190520
  Receipt Date: 20190520
  Transmission Date: 20190711
  Serious: Yes (Hospitalization)
  Sender: FDA-Public Use
  Company Number: FR-MYLANLABS-2019M1047802

PATIENT
  Age: 67 Year
  Sex: Female

DRUGS (9)
  1. EBASTINE [Concomitant]
     Active Substance: EBASTINE
     Dosage: 20 MILLIGRAM, QD
     Route: 048
  2. LERCAN [Concomitant]
     Active Substance: LERCANIDIPINE
     Dosage: 0.5 DOSAGE FORM, QD
     Route: 048
  3. SOLUPRED                           /00016201/ [Concomitant]
     Active Substance: PREDNISOLONE
     Dosage: UNK
     Dates: start: 20180425, end: 20180425
  4. IZALGI 500 MG/25 MG, G?LULE [Suspect]
     Active Substance: ACETAMINOPHEN\OPIUM
     Indication: BACK PAIN
     Dosage: UNK
     Route: 048
     Dates: start: 20180425, end: 20180425
  5. DOLIPRANE [Concomitant]
     Active Substance: ACETAMINOPHEN
     Dosage: UNK
     Route: 048
  6. TAHOR [Concomitant]
     Active Substance: ATORVASTATIN CALCIUM
     Dosage: 1 DOSAGE FORM, QD
     Route: 048
  7. KETOPROFEN. [Suspect]
     Active Substance: KETOPROFEN
     Indication: BACK PAIN
     Dosage: UNK
     Route: 048
     Dates: start: 20180424, end: 20180424
  8. MIOREL                             /00252601/ [Concomitant]
     Active Substance: BACLOFEN
     Dosage: UNK
     Dates: start: 20180425, end: 20180425
  9. STILNOX [Concomitant]
     Active Substance: ZOLPIDEM TARTRATE
     Dosage: UNK
     Route: 048

REACTIONS (2)
  - Pancreatitis acute [Recovered/Resolved]
  - Sphincter of Oddi dysfunction [Recovered/Resolved]

NARRATIVE: CASE EVENT DATE: 20180424
